FAERS Safety Report 13189304 (Version 2)
Quarter: 2017Q1

REPORT INFORMATION
  Report Type: Report from Study
  Country: US (occurrence: US)
  Receive Date: 20170206
  Receipt Date: 20170327
  Transmission Date: 20170428
  Serious: Yes (Other)
  Sender: FDA-Public Use
  Company Number: US-PFIZER INC-2017049924

PATIENT
  Age: 73 Year
  Sex: Female

DRUGS (1)
  1. IBRANCE [Suspect]
     Active Substance: PALBOCICLIB
     Indication: BREAST CANCER
     Dosage: 100 MG, CYCLIC (DAILY FOR DAY 1-DAY 21 FOLLOWED)
     Route: 048
     Dates: start: 20160630

REACTIONS (4)
  - Bone marrow failure [Unknown]
  - Diarrhoea [Unknown]
  - Nausea [Unknown]
  - Drug dose omission [Unknown]
